FAERS Safety Report 5418443-6 (Version None)
Quarter: 2007Q3

REPORT INFORMATION
  Report Type: 
  Country: None (occurrence: None)
  Receive Date: 20070718
  Receipt Date: 20070515
  Transmission Date: 20080115
  Serious: Yes (Hospitalization, Other)
  Sender: FDA-Public Use
  Company Number: 2006133688

PATIENT
  Age: 53 Year
  Sex: Male
  Weight: 87.1 kg

DRUGS (6)
  1. CELECOXIB [Suspect]
     Indication: PAIN MANAGEMENT
     Dosage: 200 MG (200 MG, 1 IN 1 D) ORAL
     Route: 048
     Dates: start: 20040218, end: 20040101
  2. VIOXX [Suspect]
     Dosage: 25 MG ORAL
     Route: 048
     Dates: start: 20000501, end: 20040901
  3. VIAGRA [Concomitant]
  4. CRESTOR [Concomitant]
  5. ALLEGRA [Concomitant]
  6. ALTACE [Concomitant]

REACTIONS (1)
  - ISCHAEMIC STROKE [None]
